FAERS Safety Report 16922732 (Version 1)
Quarter: 2019Q4

REPORT INFORMATION
  Report Type: Spontaneous
  Country: GR (occurrence: GR)
  Receive Date: 20191016
  Receipt Date: 20191016
  Transmission Date: 20200122
  Serious: Yes (Hospitalization)
  Sender: FDA-Public Use
  Company Number: GR-CELLTRION INC.-2019GR025370

PATIENT

DRUGS (1)
  1. INFLIXIMAB (UNKNOWN) [Suspect]
     Active Substance: INFLIXIMAB
     Indication: CROHN^S DISEASE
     Dosage: 5 MG/KG, UNK
     Route: 065

REACTIONS (8)
  - C-reactive protein increased [Recovering/Resolving]
  - Cytomegalovirus test [Unknown]
  - Cytomegalovirus infection [Recovered/Resolved]
  - Splenomegaly [Recovering/Resolving]
  - Liver disorder [Recovering/Resolving]
  - Diarrhoea [Recovering/Resolving]
  - Lymphocytosis [Recovering/Resolving]
  - Pyrexia [Recovering/Resolving]
